FAERS Safety Report 4929557-9 (Version None)
Quarter: 2006Q1

REPORT INFORMATION
  Report Type: 
  Country: None (occurrence: None)
  Receive Date: 20060224
  Receipt Date: 20060210
  Transmission Date: 20060701
  Serious: Yes (Other)
  Sender: FDA-Public Use
  Company Number: 2004S1003548

PATIENT
  Age: 11 Year
  Sex: Female

DRUGS (13)
  1. MERCAPTAMINE BITARTRATE (MERCAPTAMINE BITARTRATE) [Suspect]
     Indication: CYSTINOSIS
     Dosage: SEE IMAGE
     Route: 048
     Dates: start: 19960201, end: 20020101
  2. MERCAPTAMINE BITARTRATE (MERCAPTAMINE BITARTRATE) [Suspect]
     Indication: CYSTINOSIS
     Dosage: SEE IMAGE
     Route: 048
     Dates: start: 20020101, end: 20041101
  3. MERCAPTAMINE BITARTRATE (MERCAPTAMINE BITARTRATE) [Suspect]
     Indication: CYSTINOSIS
     Dosage: SEE IMAGE
     Route: 048
     Dates: start: 20041101
  4. INSULIN [Concomitant]
  5. INSULIN ISOPHANE BOVINE [Concomitant]
  6. SOMATROPIN [Concomitant]
  7. CALCIDIOL [Concomitant]
  8. EPOETIN BETA [Concomitant]
  9. SACCHARATED IRON OXIDE [Concomitant]
  10. FOLIC ACID [Concomitant]
  11. RIBOFLAVIN TAB [Concomitant]
  12. PYRIDOXINE HYDROCHLORIDE INJ [Concomitant]
  13. POTASSIUM [Concomitant]

REACTIONS (7)
  - ASTHENIA [None]
  - DIABETES MELLITUS [None]
  - HAEMODIALYSIS [None]
  - MYOPATHY [None]
  - SKIN DISCOLOURATION [None]
  - SKIN DISORDER [None]
  - X-RAY LIMB ABNORMAL [None]
